FAERS Safety Report 9078378 (Version 1)
Quarter: 2013Q1

REPORT INFORMATION
  Report Type: Spontaneous
  Country: DE (occurrence: DE)
  Receive Date: 20130130
  Receipt Date: 20130130
  Transmission Date: 20140127
  Serious: Yes (Hospitalization)
  Sender: FDA-Public Use
  Company Number: DE-ROCHE-1155403

PATIENT
  Age: 65 Year
  Sex: Female

DRUGS (7)
  1. ZELBORAF [Suspect]
     Indication: MALIGNANT MELANOMA
     Route: 048
     Dates: start: 20120914, end: 20121011
  2. ZELBORAF [Suspect]
     Route: 048
     Dates: start: 20121109
  3. DEXAMETHASONE [Concomitant]
     Indication: OEDEMA
     Route: 048
     Dates: start: 20120926, end: 20121010
  4. LYRICA [Concomitant]
     Indication: PAIN
     Route: 048
     Dates: start: 20121105
  5. NOVALGIN [Concomitant]
     Indication: PAIN
     Route: 048
     Dates: start: 20121105
  6. MCP [Concomitant]
     Indication: NAUSEA
     Route: 048
     Dates: start: 20121105
  7. OMEP [Concomitant]
     Indication: PROPHYLAXIS AGAINST GASTROINTESTINAL ULCER
     Route: 048
     Dates: start: 20121105

REACTIONS (6)
  - Myalgia [Unknown]
  - Pyrexia [Recovered/Resolved]
  - Pain of skin [Recovered/Resolved]
  - Erythema [Recovered/Resolved]
  - Dyspnoea [Recovered/Resolved]
  - Arthralgia [Recovered/Resolved]
